FAERS Safety Report 8373126-8 (Version None)
Quarter: 2012Q2

REPORT INFORMATION
  Report Type: 
  Country: None (occurrence: None)
  Receive Date: 20120521
  Receipt Date: 20120517
  Transmission Date: 20120825
  Serious: Yes (Hospitalization)
  Sender: FDA-Public Use
  Company Number: US-PFIZER INC-2012120805

PATIENT
  Sex: Female
  Weight: 57.143 kg

DRUGS (6)
  1. TYLENOL [Concomitant]
     Indication: INTERVERTEBRAL DISC DEGENERATION
  2. ACCURETIC [Suspect]
     Indication: HYPERTENSION
     Dosage: QUINAPRIL/ HYDROCHLOROTHIAZIDE 20/12.5 MG, 1X/DAY
     Route: 048
  3. HYDROCODONE [Concomitant]
     Indication: BACK DISORDER
     Dosage: UNK
  4. HYDROCODONE [Concomitant]
     Indication: INTERVERTEBRAL DISC DEGENERATION
  5. TOPROL-XL [Concomitant]
     Indication: HYPERTENSION
     Dosage: 25 MG, 1X/DAY
  6. TYLENOL [Concomitant]
     Indication: BACK DISORDER
     Dosage: UNK, AS NEEDED

REACTIONS (2)
  - BLOOD SODIUM DECREASED [None]
  - ELECTROLYTE IMBALANCE [None]
